FAERS Safety Report 4923655-1 (Version None)
Quarter: 2006Q1

REPORT INFORMATION
  Report Type: 
  Country: None (occurrence: None)
  Receive Date: 20060227
  Receipt Date: 20050707
  Transmission Date: 20060701
  Serious: Yes (Hospitalization)
  Sender: FDA-Public Use
  Company Number: US-MERCK-0507USA01237

PATIENT
  Age: 58 Year
  Sex: Female
  Weight: 102 kg

DRUGS (5)
  1. VIOXX [Suspect]
     Indication: ARTHRITIS
     Route: 048
     Dates: start: 20010101, end: 20040901
  2. VIOXX [Suspect]
     Indication: PAIN
     Route: 048
     Dates: start: 20010101, end: 20040901
  3. ANTINEOPLASTIC (UNSPECIFIED) [Concomitant]
     Route: 065
  4. VICODIN [Concomitant]
     Indication: PAIN
     Route: 065
     Dates: start: 19940301
  5. CELEBREX [Concomitant]
     Route: 065
     Dates: start: 20030701

REACTIONS (1)
  - DEEP VEIN THROMBOSIS [None]
